FAERS Safety Report 23146089 (Version 1)
Quarter: 2023Q4

REPORT INFORMATION
  Report Type: Spontaneous
  Country: US (occurrence: US)
  Receive Date: 20231104
  Receipt Date: 20231104
  Transmission Date: 20240110
  Serious: No
  Sender: FDA-Public Use
  Company Number: US-002147023-NVSC2023US236473

PATIENT
  Age: 30 Year
  Sex: Female

DRUGS (1)
  1. COSENTYX [Suspect]
     Active Substance: SECUKINUMAB
     Indication: Psoriasis
     Dosage: 300 MILLIGRAM PER MILLILITRE, OTHER (TWO INJECTION EVERY 4 WEEK)
     Route: 058

REACTIONS (3)
  - Nasal congestion [Unknown]
  - Oropharyngeal pain [Unknown]
  - Tonsillitis [Unknown]

NARRATIVE: CASE EVENT DATE: 20231102
